FAERS Safety Report 7257378-3 (Version None)
Quarter: 2011Q1

REPORT INFORMATION
  Report Type: 
  Country: None (occurrence: None)
  Receive Date: 20110129
  Receipt Date: 20100802
  Transmission Date: 20110831
  Serious: No
  Sender: FDA-Public Use
  Company Number: US-ABBOTT-10P-163-0661382-00

PATIENT
  Age: 42 Year
  Sex: Male

DRUGS (6)
  1. LOTOPIN [Concomitant]
     Indication: BLOOD PRESSURE
  2. HUMULIN SLIDING SCALE [Concomitant]
     Indication: PRODUCT USED FOR UNKNOWN INDICATION
     Dosage: DEPENDING ON WHAT BLOOD SUGARS  ARE
  3. LASIX [Concomitant]
     Indication: PRODUCT USED FOR UNKNOWN INDICATION
  4. BAYER LOW DOSE [Concomitant]
     Indication: PRODUCT USED FOR UNKNOWN INDICATION
  5. HUMIRA [Suspect]
     Indication: PSORIASIS
     Dates: start: 20100501
  6. LANTUS [Concomitant]
     Indication: DIABETES MELLITUS
     Dosage: AM

REACTIONS (2)
  - PARAESTHESIA [None]
  - HYPOAESTHESIA [None]
